FAERS Safety Report 19155043 (Version 1)
Quarter: 2021Q2

REPORT INFORMATION
  Report Type: Spontaneous
  Country: CO (occurrence: CO)
  Receive Date: 20210419
  Receipt Date: 20210419
  Transmission Date: 20210717
  Serious: Yes (Hospitalization, Other)
  Sender: FDA-Public Use
  Company Number: CO-PFIZER INC-2021380925

PATIENT
  Sex: Female

DRUGS (1)
  1. REAMPLA [Suspect]
     Active Substance: PALBOCICLIB
     Dosage: 125 MG, CYCLIC(125 MG, TAKES THE MEDICATION FOR 21 DAYS AND RESTS FOR 8 DAYS)
     Route: 048
     Dates: start: 202101

REACTIONS (1)
  - Cholelithiasis [Unknown]
